FAERS Safety Report 25995717 (Version 1)
Quarter: 2025Q4

REPORT INFORMATION
  Report Type: Spontaneous
  Country: US (occurrence: None)
  Receive Date: 20251103
  Receipt Date: 20251103
  Transmission Date: 20260118
  Serious: Yes (Hospitalization)
  Sender: FDA-CTU
  Company Number: None

PATIENT
  Sex: Female

DRUGS (1)
  1. TOBRAMYCIN [Suspect]
     Active Substance: TOBRAMYCIN
     Indication: Pneumonia pseudomonal
     Dosage: FREQUENCY : TWICE A DAY;?
     Route: 055
     Dates: start: 20250116

REACTIONS (3)
  - Confusional state [None]
  - Transient ischaemic attack [None]
  - Oxygen saturation abnormal [None]
